FAERS Safety Report 6023523-0 (Version None)
Quarter: 2008Q4

REPORT INFORMATION
  Report Type: 
  Country: None (occurrence: None)
  Receive Date: 20081226
  Receipt Date: 20081226
  Transmission Date: 20090506
  Serious: Yes (Hospitalization)
  Sender: FDA-Public Use
  Company Number: None

PATIENT
  Age: 60 Year
  Sex: Male

DRUGS (2)
  1. LINEZOLID [Suspect]
     Indication: CELLULITIS
     Dosage: 600 MG BID PO
     Route: 048
     Dates: start: 20081218, end: 20081220
  2. SERTRALINE [Suspect]
     Indication: DEPRESSION
     Dosage: 200 MG EVERY DAY PO
     Route: 048
     Dates: start: 20030523, end: 20081218

REACTIONS (10)
  - AGITATION [None]
  - AUTONOMIC NERVOUS SYSTEM IMBALANCE [None]
  - CLONUS [None]
  - CONFUSIONAL STATE [None]
  - DIARRHOEA [None]
  - HALLUCINATION, VISUAL [None]
  - HYPERREFLEXIA [None]
  - MENTAL STATUS CHANGES [None]
  - NAUSEA [None]
  - VOMITING [None]
